FAERS Safety Report 10855009 (Version 1)
Quarter: 2015Q1

REPORT INFORMATION
  Report Type: Spontaneous
  Country: US (occurrence: None)
  Receive Date: 20150218
  Receipt Date: 20150218
  Transmission Date: 20150721
  Serious: Yes (Life-Threatening)
  Sender: FDA-Public Use
  Company Number: None

PATIENT
  Age: 52 Year
  Sex: Female
  Weight: 59.88 kg

DRUGS (1)
  1. XOLAIR [Suspect]
     Active Substance: OMALIZUMAB
     Indication: URTICARIA
     Dosage: GIVEN INTO/UNDER THE SKIN
     Dates: start: 20131123, end: 20141223

REACTIONS (4)
  - Basal cell carcinoma [None]
  - Palpitations [None]
  - Insomnia [None]
  - Malignant melanoma [None]

NARRATIVE: CASE EVENT DATE: 20150212
